FAERS Safety Report 6050464-5 (Version None)
Quarter: 2009Q1

REPORT INFORMATION
  Report Type: 
  Country: None (occurrence: None)
  Receive Date: 20090122
  Receipt Date: 20090122
  Transmission Date: 20090719
  Serious: Yes (Other)
  Sender: FDA-Public Use
  Company Number: None

PATIENT
  Age: 62 Year
  Sex: Male
  Weight: 136.0791 kg

DRUGS (1)
  1. JANUVIA [Suspect]
     Indication: DIABETES MELLITUS
     Dosage: 1 PILL ONCE A DAY PO
     Route: 048
     Dates: start: 20080410, end: 20080420

REACTIONS (5)
  - ECONOMIC PROBLEM [None]
  - LOSS OF EMPLOYMENT [None]
  - RASH GENERALISED [None]
  - RASH PRURITIC [None]
  - SLEEP DISORDER DUE TO GENERAL MEDICAL CONDITION, INSOMNIA TYPE [None]
